FAERS Safety Report 17911985 (Version 1)
Quarter: 2020Q2

REPORT INFORMATION
  Report Type: Spontaneous
  Country: US (occurrence: US)
  Receive Date: 20200618
  Receipt Date: 20200618
  Transmission Date: 20200714
  Serious: No
  Sender: FDA-Public Use
  Company Number: US-TEVA-2020-US-1584066

PATIENT
  Sex: Female

DRUGS (1)
  1. SPRINTEC [Suspect]
     Active Substance: ETHINYL ESTRADIOL\NORGESTIMATE
     Dosage: REPORTED AS 10 YEARS AGO, RELATIVE TO 06-MAY-2020
     Route: 065
     Dates: start: 2010

REACTIONS (3)
  - Malaise [Unknown]
  - Breast pain [Unknown]
  - Nausea [Unknown]
